FAERS Safety Report 10070577 (Version 1)
Quarter: 2014Q2

REPORT INFORMATION
  Report Type: Spontaneous
  Country: US (occurrence: US)
  Receive Date: 20140410
  Receipt Date: 20140410
  Transmission Date: 20141212
  Serious: No
  Sender: FDA-Public Use
  Company Number: US-BAYER-2014-047887

PATIENT
  Age: 50 Year
  Sex: Female

DRUGS (1)
  1. BETASERON [Suspect]
     Indication: MULTIPLE SCLEROSIS
     Dosage: DAILY DOSE .3 MG
     Dates: start: 2002

REACTIONS (5)
  - Memory impairment [None]
  - Depression [None]
  - Injection site bruising [None]
  - Injection site mass [None]
  - Injection site pain [None]
